FAERS Safety Report 7318808-1 (Version None)
Quarter: 2011Q1

REPORT INFORMATION
  Report Type: 
  Country: None (occurrence: None)
  Receive Date: 20110228
  Receipt Date: 20100629
  Transmission Date: 20110831
  Serious: No
  Sender: FDA-Public Use
  Company Number: A0869477A

PATIENT
  Age: 57 Year
  Sex: Female

DRUGS (3)
  1. IMITREX [Suspect]
     Route: 058
  2. IMITREX [Suspect]
     Dosage: 6.5MG AS DIRECTED
     Route: 058
  3. TREXIMET [Suspect]
     Route: 048

REACTIONS (2)
  - MALAISE [None]
  - CONFUSIONAL STATE [None]
